FAERS Safety Report 11548975 (Version 2)
Quarter: 2015Q3

REPORT INFORMATION
  Report Type: Spontaneous
  Country: US (occurrence: US)
  Receive Date: 20150903
  Receipt Date: 20150916
  Transmission Date: 20151125
  Serious: No
  Sender: FDA-Public Use
  Company Number: US-ELI_LILLY_AND_COMPANY-US201304006235

PATIENT
  Sex: Female

DRUGS (3)
  1. HUMALOG [Suspect]
     Active Substance: INSULIN LISPRO
     Dosage: 30 U, TID
  2. LANTUS [Concomitant]
     Active Substance: INSULIN GLARGINE
  3. HUMALOG [Suspect]
     Active Substance: INSULIN LISPRO
     Indication: DIABETES MELLITUS
     Dosage: 60 U, BID
     Dates: start: 2010

REACTIONS (13)
  - Back pain [Unknown]
  - Pain in extremity [Unknown]
  - Unevaluable event [Unknown]
  - Gait disturbance [Unknown]
  - Renal impairment [Unknown]
  - Liver function test abnormal [Unknown]
  - Fatigue [Unknown]
  - Blood glucose decreased [Unknown]
  - Blood glucose increased [Unknown]
  - Peripheral swelling [Unknown]
  - Hepatitis C [Unknown]
  - Dry mouth [Unknown]
  - Malaise [Unknown]

NARRATIVE: CASE EVENT DATE: 201303
